FAERS Safety Report 6129212-6 (Version None)
Quarter: 2009Q1

REPORT INFORMATION
  Report Type: 
  Country: None (occurrence: None)
  Receive Date: 20090323
  Receipt Date: 20090323
  Transmission Date: 20090719
  Serious: No
  Sender: FDA-Public Use
  Company Number: None

PATIENT
  Sex: Male
  Weight: 33.1 kg

DRUGS (6)
  1. PEG-L ASPARAGINASE (PEGASPARGASE, ONCOSPAR) [Suspect]
     Dosage: 2825 UNIT
     Dates: end: 20090317
  2. VINCRISTINE SULFATE [Suspect]
     Dosage: 1.7 MG
     Dates: end: 20090317
  3. CYCLOPHOSPHAMIDE [Suspect]
     Dosage: 1150 MG
     Dates: end: 20090303
  4. CYTARABINE [Suspect]
     Dosage: 680 MG
     Dates: end: 20090313
  5. MERCAPTOPURINE [Suspect]
     Dosage: 950MG
     Dates: end: 20090316
  6. METHOTREXATE [Suspect]
     Dosage: 45 MG
     Dates: end: 20090317

REACTIONS (4)
  - DRUG HYPERSENSITIVITY [None]
  - HEART RATE INCREASED [None]
  - INFUSION RELATED REACTION [None]
  - RESPIRATORY DISTRESS [None]
